FAERS Safety Report 8927321 (Version 5)
Quarter: 2013Q1

REPORT INFORMATION
  Report Type: Spontaneous
  Country: US (occurrence: US)
  Receive Date: 20121127
  Receipt Date: 20130220
  Transmission Date: 20140127
  Serious: Yes (Death, Hospitalization, Other)
  Sender: FDA-Public Use
  Company Number: PHEH2012US022321

PATIENT
  Age: 52 Year
  Sex: Female
  Weight: 49.89 kg

DRUGS (15)
  1. GILENYA [Suspect]
     Indication: MULTIPLE SCLEROSIS
     Dosage: 0.5 MG, QD
     Route: 048
     Dates: start: 20120517
  2. OXYCODONE / ACETAMINOPHEN [Concomitant]
     Dosage: 2 DF, Q6H
     Route: 048
  3. AMPYRA [Concomitant]
     Dosage: 10 MG, BID
     Route: 048
  4. SERTRALINE [Concomitant]
     Dosage: 50 MG, QD
     Route: 048
  5. PRIMIDONE [Concomitant]
     Dosage: 50 MG, TID
     Route: 048
  6. OXYBUTON//OXYBUTYNIN HYDROCHLORIDE [Concomitant]
     Dosage: 5 MG, UNK
     Route: 048
  7. AMANTADIN [Concomitant]
     Dosage: 100 MG, BID
     Route: 048
  8. ANTIHYPERTENSIVE DRUGS [Concomitant]
     Indication: BLOOD PRESSURE
  9. LOVENOX [Concomitant]
  10. LEVAQUIN [Concomitant]
  11. COUMADINE [Concomitant]
  12. PERCOCET [Concomitant]
     Dosage: 2 DF, Q6H
     Route: 048
  13. ZOLOFT [Concomitant]
     Dosage: 50 MG, QD
     Route: 048
  14. CRESTOR [Concomitant]
     Dosage: 10 MG, QD
     Route: 048
  15. MORPHINE [Concomitant]
     Dosage: 30 MG, BID
     Route: 048

REACTIONS (55)
  - Lung adenocarcinoma [Fatal]
  - Chronic obstructive pulmonary disease [Fatal]
  - Emphysema [Fatal]
  - Pulmonary cavitation [Fatal]
  - Pulmonary fibrosis [Fatal]
  - Femoral neck fracture [Not Recovered/Not Resolved]
  - Injury [Unknown]
  - Fall [Not Recovered/Not Resolved]
  - Contusion [Unknown]
  - Adrenal mass [Unknown]
  - Lymphadenopathy [Unknown]
  - Osteoarthritis [Unknown]
  - Confusional state [Unknown]
  - Ligament sprain [Unknown]
  - Malnutrition [Unknown]
  - Joint swelling [Unknown]
  - Cachexia [Unknown]
  - Sinus tachycardia [Unknown]
  - Monocyte percentage increased [Unknown]
  - Monocyte count increased [Unknown]
  - Blood chloride decreased [Unknown]
  - Blood creatinine decreased [Unknown]
  - Blood potassium increased [Unknown]
  - Blood albumin decreased [Unknown]
  - Mean platelet volume decreased [Unknown]
  - Anion gap decreased [Unknown]
  - Albumin globulin ratio decreased [Unknown]
  - Blood magnesium decreased [Unknown]
  - Red blood cell count decreased [Unknown]
  - Blood uric acid decreased [Unknown]
  - Mean cell volume increased [Unknown]
  - Haematocrit decreased [Unknown]
  - Blood glucose increased [Unknown]
  - Platelet count increased [Unknown]
  - Pyrexia [Unknown]
  - Arthralgia [Unknown]
  - Tenderness [Unknown]
  - Erythema [Unknown]
  - Dehydration [Unknown]
  - Haemoglobin decreased [Unknown]
  - Dry mouth [Unknown]
  - Hyponatraemia [Unknown]
  - Blood alkaline phosphatase increased [Unknown]
  - Decreased appetite [Unknown]
  - Blood calcium decreased [Unknown]
  - Neutrophil percentage increased [Unknown]
  - Local swelling [Unknown]
  - Neutrophil count increased [Unknown]
  - Muscular weakness [Unknown]
  - Lymphocyte percentage decreased [Unknown]
  - Lymphocyte count decreased [Unknown]
  - White blood cells urine positive [Unknown]
  - Weight decreased [Unknown]
  - Urinary tract infection [Unknown]
  - Pharyngitis [Unknown]
